FAERS Safety Report 21588890 (Version 1)
Quarter: 2022Q4

REPORT INFORMATION
  Report Type: Spontaneous
  Country: US (occurrence: None)
  Receive Date: 20221111
  Receipt Date: 20221111
  Transmission Date: 20230112
  Serious: Yes (Hospitalization)
  Sender: FDA-Public Use
  Company Number: None

PATIENT
  Sex: Male
  Weight: 64.7 kg

DRUGS (4)
  1. CISPLATIN [Suspect]
     Active Substance: CISPLATIN
     Dates: end: 20221026
  2. IFOSFAMIDE [Suspect]
     Active Substance: IFOSFAMIDE
     Dates: end: 20221026
  3. TAXOL [Suspect]
     Active Substance: PACLITAXEL
     Dates: end: 20221025
  4. NEULASTA [Suspect]
     Active Substance: PEGFILGRASTIM
     Dates: end: 20221101

REACTIONS (6)
  - Neutrophil count increased [None]
  - Febrile neutropenia [None]
  - Vomiting [None]
  - Decreased appetite [None]
  - Diarrhoea [None]
  - Neutropenic sepsis [None]

NARRATIVE: CASE EVENT DATE: 20221102
